FAERS Safety Report 6056952 (Version 8)
Quarter: 2021Q4

REPORT INFORMATION
  Report Type: Spontaneous
  Country: US (occurrence: US)
  Receive Date: 20060602
  Receipt Date: 20211228
  Transmission Date: 20220303
  Serious: Yes (Death, Life-Threatening, Hospitalization)
  Sender: FDA-Public Use
  Company Number: US-JNJFOC-20051101127

PATIENT
  Age: 81 Year
  Sex: Female
  Weight: 54.480 kg

DRUGS (12)
  1. REMICADE [Suspect]
     Active Substance: INFLIXIMAB
     Indication: Rheumatoid arthritis
     Route: 042
     Dates: start: 200207
  2. REMICADE [Suspect]
     Active Substance: INFLIXIMAB
     Route: 042
     Dates: start: 20020701, end: 200404
  3. REMICADE [Suspect]
     Active Substance: INFLIXIMAB
     Route: 042
     Dates: start: 200404
  4. REMICADE [Suspect]
     Active Substance: INFLIXIMAB
     Route: 042
     Dates: start: 20040811
  5. REMICADE [Suspect]
     Active Substance: INFLIXIMAB
     Route: 042
     Dates: end: 20040811
  6. IMURAN [Suspect]
     Active Substance: AZATHIOPRINE
     Indication: Rheumatoid arthritis
     Dates: end: 20040902
  7. IMURAN [Suspect]
     Active Substance: AZATHIOPRINE
     Indication: Inflammation
  8. PREDNISONE [Concomitant]
     Active Substance: PREDNISONE
     Indication: Rheumatoid arthritis
     Dosage: DOSE STRENGTH: 10 MG
     Route: 065
     Dates: start: 20040902
  9. PREDNISONE [Concomitant]
     Active Substance: PREDNISONE
     Indication: Inflammation
  10. HYDROCHLOROTHIAZIDE [Concomitant]
     Active Substance: HYDROCHLOROTHIAZIDE
  11. POTASSIUM [Concomitant]
     Active Substance: POTASSIUM
  12. FOSAMAX [Concomitant]
     Active Substance: ALENDRONATE SODIUM

REACTIONS (13)
  - Multiple organ dysfunction syndrome [Fatal]
  - Myocardial infarction [Fatal]
  - Atrial fibrillation [Unknown]
  - Urosepsis [Fatal]
  - Cardiac failure congestive [Unknown]
  - Cerebrovascular accident [Not Recovered/Not Resolved]
  - Renal failure [Fatal]
  - Gastrointestinal infection [Not Recovered/Not Resolved]
  - Rash [Unknown]
  - Infusion related reaction [Unknown]
  - Drug ineffective [Unknown]
  - Arthritis [Unknown]
  - Flushing [Unknown]

NARRATIVE: CASE EVENT DATE: 20040101
